FAERS Safety Report 17924894 (Version 1)
Quarter: 2020Q2

REPORT INFORMATION
  Report Type: Spontaneous
  Country: US (occurrence: US)
  Receive Date: 20200622
  Receipt Date: 20200622
  Transmission Date: 20200714
  Serious: Yes (Other)
  Sender: FDA-Public Use
  Company Number: US-AMGEN-USASP2020097226

PATIENT

DRUGS (1)
  1. NEULASTA [Suspect]
     Active Substance: PEGFILGRASTIM
     Indication: PRODUCT USED FOR UNKNOWN INDICATION
     Dosage: UNK
     Route: 058

REACTIONS (30)
  - Thrombocytopenia [Unknown]
  - Adverse event [Unknown]
  - Pain in extremity [Unknown]
  - Drug specific antibody present [Unknown]
  - Dizziness [Unknown]
  - Rash [Unknown]
  - Swelling face [Unknown]
  - Splenomegaly [Unknown]
  - Alanine aminotransferase increased [Unknown]
  - Musculoskeletal pain [Unknown]
  - Injection site pain [Unknown]
  - Angioedema [Unknown]
  - Vessel puncture site bruise [Unknown]
  - Eczema [Unknown]
  - Skin reaction [Unknown]
  - Vessel puncture site rash [Unknown]
  - Dermatitis contact [Unknown]
  - Injection site rash [Unknown]
  - Rash macular [Unknown]
  - Allergic respiratory disease [Unknown]
  - Back pain [Unknown]
  - Rhinitis allergic [Unknown]
  - Headache [Unknown]
  - Catheter site pain [Unknown]
  - Contusion [Unknown]
  - Dermatitis allergic [Unknown]
  - Myalgia [Unknown]
  - Hypersensitivity [Unknown]
  - Nausea [Unknown]
  - Dermatitis [Unknown]
